FAERS Safety Report 5076163-4 (Version None)
Quarter: 2006Q3

REPORT INFORMATION
  Report Type: 
  Country: None (occurrence: None)
  Receive Date: 20060804
  Receipt Date: 20060731
  Transmission Date: 20061208
  Serious: Yes (Other)
  Sender: FDA-Public Use
  Company Number: 200613268GDS

PATIENT
  Age: 34 Year
  Sex: Female

DRUGS (5)
  1. ASPIRIN [Suspect]
     Indication: ANTIPHOSPHOLIPID ANTIBODIES
  2. ASPIRIN [Suspect]
     Indication: SYSTEMIC LUPUS ERYTHEMATOSUS
  3. PREDNISOLONE [Suspect]
     Indication: SYSTEMIC LUPUS ERYTHEMATOSUS
  4. HEPARIN SODIUM [Suspect]
     Indication: ANTIPHOSPHOLIPID ANTIBODIES
  5. HEPARIN SODIUM [Suspect]
     Indication: SYSTEMIC LUPUS ERYTHEMATOSUS

REACTIONS (4)
  - CAESAREAN SECTION [None]
  - DRUG EXPOSURE DURING PREGNANCY [None]
  - GENITAL HAEMORRHAGE [None]
  - PREMATURE SEPARATION OF PLACENTA [None]
